FAERS Safety Report 12343577 (Version 1)
Quarter: 2016Q2

REPORT INFORMATION
  Report Type: Spontaneous
  Country: US (occurrence: US)
  Receive Date: 20160506
  Receipt Date: 20160506
  Transmission Date: 20160815
  Serious: No
  Sender: FDA-Public Use
  Company Number: US-009507513-1604USA017809

PATIENT
  Sex: Female

DRUGS (1)
  1. BELSOMRA [Suspect]
     Active Substance: SUVOREXANT
     Indication: INSOMNIA
     Dosage: 10 MG, QD
     Route: 048
     Dates: end: 20160427

REACTIONS (4)
  - Paradoxical drug reaction [Recovering/Resolving]
  - Adverse event [Recovering/Resolving]
  - Hypervigilance [Recovering/Resolving]
  - Drug ineffective [Recovering/Resolving]
